FAERS Safety Report 14226993 (Version 3)
Quarter: 2018Q4

REPORT INFORMATION
  Report Type: Spontaneous
  Country: JP (occurrence: JP)
  Receive Date: 20171127
  Receipt Date: 20181211
  Transmission Date: 20190204
  Serious: No
  Sender: FDA-Public Use
  Company Number: JP-JNJFOC-20171122742

PATIENT
  Age: 68 Year
  Sex: Female
  Weight: 46 kg

DRUGS (13)
  1. YONDELIS [Suspect]
     Active Substance: TRABECTEDIN
     Indication: LEIOMYOSARCOMA METASTATIC
     Route: 042
     Dates: start: 20170425
  2. BERIZYM [Concomitant]
     Active Substance: CELLULASE\DIASTASE\LIPASE
     Indication: DYSPEPSIA
     Route: 048
  3. IFOMIDE [Suspect]
     Active Substance: IFOSFAMIDE
     Indication: LEIOMYOSARCOMA METASTATIC
     Dosage: ON DAYS 1-3 OF EACH 28-DAY CYCLE
     Route: 041
     Dates: start: 20150616, end: 20150818
  4. AMLODIPINE BESILATE [Concomitant]
     Active Substance: AMLODIPINE BESYLATE
     Indication: HYPERTENSION
     Route: 048
  5. HALAVEN [Suspect]
     Active Substance: ERIBULIN MESYLATE
     Indication: LEIOMYOSARCOMA METASTATIC
     Dosage: ON DAYS 1 AND 8 OF EACH 21-DAY CYCLE
     Route: 041
     Dates: start: 20170208, end: 20170329
  6. MAGMITT [Concomitant]
     Active Substance: MAGNESIUM OXIDE
     Indication: CONSTIPATION
     Route: 048
  7. ADRIACIN [Suspect]
     Active Substance: DOXORUBICIN HYDROCHLORIDE
     Indication: LEIOMYOSARCOMA METASTATIC
     Route: 041
     Dates: start: 20130702, end: 20131029
  8. THYRADIN S [Concomitant]
     Active Substance: LEVOTHYROXINE SODIUM
     Indication: PAPILLARY THYROID CANCER
     Route: 048
  9. YONDELIS [Suspect]
     Active Substance: TRABECTEDIN
     Indication: LEIOMYOSARCOMA METASTATIC
     Route: 042
     Dates: start: 20171011
  10. YONDELIS [Suspect]
     Active Substance: TRABECTEDIN
     Indication: LEIOMYOSARCOMA METASTATIC
     Dosage: CYCLE 10
     Route: 042
     Dates: start: 20171225
  11. DOCETAXEL. [Suspect]
     Active Substance: DOCETAXEL
     Indication: LEIOMYOSARCOMA METASTATIC
     Route: 041
     Dates: start: 20120925, end: 20130219
  12. GEMCITABINE HYDROCHLORIDE. [Suspect]
     Active Substance: GEMCITABINE HYDROCHLORIDE
     Indication: LEIOMYOSARCOMA METASTATIC
     Route: 041
     Dates: start: 20120925, end: 20130219
  13. VOTRIENT [Suspect]
     Active Substance: PAZOPANIB HYDROCHLORIDE
     Indication: LEIOMYOSARCOMA METASTATIC
     Route: 048
     Dates: start: 20131225, end: 20140122

REACTIONS (3)
  - Hepatic function abnormal [Unknown]
  - Cardiac failure [Recovered/Resolved]
  - Neutrophil count decreased [Unknown]

NARRATIVE: CASE EVENT DATE: 20171114
